FAERS Safety Report 19051813 (Version 1)
Quarter: 2021Q1

REPORT INFORMATION
  Report Type: Spontaneous
  Country: GH (occurrence: GH)
  Receive Date: 20210324
  Receipt Date: 20210324
  Transmission Date: 20210420
  Serious: Yes (Other)
  Sender: FDA-Public Use
  Company Number: GH-ABBVIE-21K-064-3827513-00

PATIENT

DRUGS (1)
  1. ULTANE [Suspect]
     Active Substance: SEVOFLURANE
     Indication: GENERAL ANAESTHESIA
     Dosage: DOSE/FREQUENCY: 2 PERCENT MAC
     Route: 055

REACTIONS (2)
  - Anaesthetic complication neurological [Recovered/Resolved]
  - Aggression [Unknown]
